FAERS Safety Report 6370622-X (Version None)
Quarter: 2009Q3

REPORT INFORMATION
  Report Type: 
  Country: None (occurrence: None)
  Receive Date: 20090923
  Receipt Date: 20090909
  Transmission Date: 20100115
  Serious: Yes (Life-Threatening, Hospitalization)
  Sender: FDA-Public Use
  Company Number: US-ROCHE-648465

PATIENT
  Sex: Male
  Weight: 105.2 kg

DRUGS (12)
  1. PEGASYS [Suspect]
     Indication: HEPATITIS C
     Route: 058
     Dates: start: 20081021, end: 20090714
  2. RIBAPAK [Suspect]
     Indication: HEPATITIS C
     Route: 048
     Dates: start: 20081021, end: 20090714
  3. MILK THISTLE [Concomitant]
  4. MULTIVITAMIN NOS [Concomitant]
  5. ASPIRIN [Concomitant]
     Dosage: DRUG REPORTED AS BABY ASPIRIN
  6. BENADRYL [Concomitant]
     Indication: INSOMNIA
     Dosage: FREQUENCY: AS NECESSARY. OTHER INDICATION: ITCHING
     Route: 048
  7. FENERGAN [Concomitant]
     Indication: NAUSEA
     Dosage: FREQUENCY: AS NECESSARY
     Route: 048
  8. KLONOPIN [Concomitant]
     Indication: BIPOLAR DISORDER
     Dosage: FREQUENCY: AS NECESSARY
     Route: 048
  9. LAMICTAL [Concomitant]
     Route: 048
  10. ZEGERID [Concomitant]
     Route: 048
  11. ASPIRIN [Concomitant]
     Dosage: DRUG NAME: ASA81
  12. MV REGIMEN [Concomitant]
     Dosage: DRUG NAME: MV

REACTIONS (10)
  - ABDOMINAL DISTENSION [None]
  - COMA [None]
  - DISSEMINATED INTRAVASCULAR COAGULATION [None]
  - FATIGUE [None]
  - GASTROINTESTINAL HAEMORRHAGE [None]
  - NECROTISING FASCIITIS [None]
  - RENAL FAILURE ACUTE [None]
  - SEPSIS [None]
  - SEPTIC SHOCK [None]
  - SKIN INFECTION [None]
